FAERS Safety Report 6502055-7 (Version None)
Quarter: 2009Q4

REPORT INFORMATION
  Report Type: 
  Country: None (occurrence: None)
  Receive Date: 20091216
  Receipt Date: 20091207
  Transmission Date: 20100525
  Serious: Yes (Hospitalization, Disabling, Other)
  Sender: FDA-Public Use
  Company Number: US-MERCK-0907USA04406

PATIENT
  Age: 94 Year
  Sex: Female

DRUGS (4)
  1. FOSAMAX [Suspect]
     Indication: OSTEOPOROSIS
     Route: 048
     Dates: start: 20020423, end: 20081213
  2. CARDIZEM LA [Concomitant]
     Indication: HYPERTENSION
     Route: 065
  3. WELLBUTRIN [Concomitant]
     Indication: DEPRESSION
     Route: 065
  4. CALCIUM (UNSPECIFIED) [Concomitant]
     Route: 065

REACTIONS (15)
  - ANXIETY [None]
  - AORTIC STENOSIS [None]
  - BIFASCICULAR BLOCK [None]
  - BLADDER PROLAPSE [None]
  - DEPRESSION [None]
  - DYSPEPSIA [None]
  - FALL [None]
  - FEMUR FRACTURE [None]
  - HYPOACUSIS [None]
  - HYPONATRAEMIA [None]
  - OSTEOMYELITIS [None]
  - PNEUMONIA [None]
  - PULMONARY HYPERTENSION [None]
  - SPINAL COMPRESSION FRACTURE [None]
  - URINARY TRACT INFECTION [None]
